FAERS Safety Report 6621784-8 (Version None)
Quarter: 2010Q1

REPORT INFORMATION
  Report Type: 
  Country: None (occurrence: None)
  Receive Date: 20100223
  Receipt Date: 20091214
  Transmission Date: 20100710
  Serious: No
  Sender: FDA-Public Use
  Company Number: 003120

PATIENT
  Sex: Female
  Weight: 57.6068 kg

DRUGS (1)
  1. CIMZIA [Suspect]
     Dosage: 400 MG EVERY 2 WEEKS [SUBSEQUENT MAINTENANCE:  400 MG MONTHLY] INTRAMUSCULAR
     Route: 030
     Dates: start: 20091123

REACTIONS (2)
  - INCORRECT ROUTE OF DRUG ADMINISTRATION [None]
  - MIGRAINE [None]
